FAERS Safety Report 24355583 (Version 3)
Quarter: 2024Q4

REPORT INFORMATION
  Report Type: Spontaneous
  Country: DE (occurrence: DE)
  Receive Date: 20240924
  Receipt Date: 20241125
  Transmission Date: 20250115
  Serious: Yes (Death, Other)
  Sender: TAKEDA
  Company Number: DE-TAKEDA-2024TUS093809

PATIENT
  Sex: Male

DRUGS (1)
  1. FRUQUINTINIB [Suspect]
     Active Substance: FRUQUINTINIB
     Indication: Colorectal cancer metastatic
     Dosage: UNK

REACTIONS (5)
  - Organ failure [Fatal]
  - Liver disorder [Fatal]
  - Metastases to lung [Fatal]
  - Metastases to liver [Fatal]
  - Metastases to peritoneum [Fatal]
